FAERS Safety Report 16045725 (Version 2)
Quarter: 2019Q1

REPORT INFORMATION
  Report Type: Spontaneous
  Country: CH (occurrence: CH)
  Receive Date: 20190307
  Receipt Date: 20190321
  Transmission Date: 20190418
  Serious: Yes (Death)
  Sender: FDA-Public Use
  Company Number: CH-ROCHE-2235503

PATIENT
  Age: 77 Year
  Sex: Male
  Weight: 71 kg

DRUGS (10)
  1. DEXAMETHASONE. [Concomitant]
     Active Substance: DEXAMETHASONE
     Route: 048
     Dates: start: 20181227, end: 20181228
  2. BACTRIM [Concomitant]
     Active Substance: SULFAMETHOXAZOLE\TRIMETHOPRIM
     Indication: INFECTION PROPHYLAXIS
     Route: 048
     Dates: start: 20190103, end: 20190109
  3. KYTRIL [Concomitant]
     Active Substance: GRANISETRON HYDROCHLORIDE
     Dosage: ANTIEMETIC
     Route: 048
     Dates: start: 20181227, end: 20181228
  4. PARACETAMOL [Concomitant]
     Active Substance: ACETAMINOPHEN
     Indication: CYTOKINE RELEASE SYNDROME
     Route: 048
     Dates: start: 20181227, end: 20181227
  5. NEBIVOLOL. [Concomitant]
     Active Substance: NEBIVOLOL
     Indication: ATRIAL FIBRILLATION
     Route: 048
     Dates: end: 201901
  6. MABTHERA [Suspect]
     Active Substance: RITUXIMAB
     Indication: B-CELL LYMPHOMA
     Route: 065
     Dates: start: 20181227, end: 20181227
  7. BENDAMUSTINA [Concomitant]
     Active Substance: BENDAMUSTINE
     Indication: B-CELL LYMPHOMA
     Route: 042
     Dates: start: 20181227, end: 20181228
  8. ALLOPURINOL. [Concomitant]
     Active Substance: ALLOPURINOL
     Indication: TUMOUR LYSIS SYNDROME
     Route: 048
     Dates: start: 20181224, end: 20190105
  9. ALLOPURINOL. [Concomitant]
     Active Substance: ALLOPURINOL
     Route: 048
     Dates: start: 20190105, end: 20190109
  10. CLEMASTIN [Concomitant]
     Active Substance: CLEMASTINE
     Dosage: ANTIHISTAMINIC
     Route: 042
     Dates: start: 20181227, end: 20181227

REACTIONS (5)
  - Pyrexia [Fatal]
  - Agranulocytosis [Fatal]
  - Off label use [Unknown]
  - Pancytopenia [Fatal]
  - Intentional product use issue [Unknown]

NARRATIVE: CASE EVENT DATE: 201901
